FAERS Safety Report 10615903 (Version 2)
Quarter: 2014Q4

REPORT INFORMATION
  Report Type: Report from Study
  Country: US (occurrence: US)
  Receive Date: 20141201
  Receipt Date: 20141202
  Transmission Date: 20150529
  Serious: Yes (Hospitalization)
  Sender: FDA-Public Use
  Company Number: US-JNJFOC-20141117555

PATIENT
  Age: 13 Year
  Sex: Female
  Weight: 86.4 kg

DRUGS (5)
  1. METHOTREXATE [Concomitant]
     Active Substance: METHOTREXATE
     Route: 065
  2. INFLIXIMAB, RECOMBINANT [Suspect]
     Active Substance: INFLIXIMAB
     Indication: CROHN^S DISEASE
     Route: 042
     Dates: start: 20100831
  3. ANTIBIOTICS [Concomitant]
     Active Substance: UNSPECIFIED INGREDIENT
     Route: 065
  4. 5-ASA [Concomitant]
     Active Substance: MESALAMINE
     Route: 048
  5. HUMIRA [Concomitant]
     Active Substance: ADALIMUMAB
     Route: 065
     Dates: start: 20101028

REACTIONS (2)
  - Pneumonia parainfluenzae viral [Recovered/Resolved]
  - Haemophilus infection [Recovered/Resolved]

NARRATIVE: CASE EVENT DATE: 20140920
